FAERS Safety Report 10420556 (Version 1)
Quarter: 2014Q2

REPORT INFORMATION
  Report Type: Spontaneous
  Country: US (occurrence: None)
  Receive Date: 20140627
  Receipt Date: 20140627
  Transmission Date: 20141212
  Serious: Yes (Other)
  Sender: FDA-Public Use
  Company Number: POI0573201400039

PATIENT
  Age: 63 Year
  Sex: Male

DRUGS (6)
  1. VENLAFAXINE EXTENDED-RELEASE [Suspect]
     Indication: DEPRESSION
     Dosage: 225 MG (225 MG, 1 IN 1 D), PER ORAL
     Route: 048
     Dates: start: 20131120, end: 20140404
  2. LAMOTRIGINE [Concomitant]
  3. POTASSIUM CHLORIDE [Concomitant]
  4. MIRTAZAPINE [Concomitant]
  5. LOSARTAN [Concomitant]
  6. CLONAZEPAM [Concomitant]

REACTIONS (8)
  - Suicidal ideation [None]
  - Constipation [None]
  - Abdominal pain [None]
  - Vomiting [None]
  - Nausea [None]
  - Muscle spasms [None]
  - Libido decreased [None]
  - Hyperhidrosis [None]
